FAERS Safety Report 4915640-0 (Version None)
Quarter: 2006Q1

REPORT INFORMATION
  Report Type: 
  Country: None (occurrence: None)
  Receive Date: 20060217
  Receipt Date: 20060208
  Transmission Date: 20060701
  Serious: Yes (Other)
  Sender: FDA-Public Use
  Company Number: DE-BRISTOL-MYERS SQUIBB COMPANY-13279252

PATIENT
  Sex: Female

DRUGS (1)
  1. VOLON [Suspect]

REACTIONS (6)
  - ABDOMINAL PAIN UPPER [None]
  - CIRCULATORY COLLAPSE [None]
  - DIZZINESS [None]
  - FLUSHING [None]
  - PRURITUS [None]
  - RASH [None]
